FAERS Safety Report 17383567 (Version 1)
Quarter: 2020Q1

REPORT INFORMATION
  Report Type: Spontaneous
  Country: US (occurrence: US)
  Receive Date: 20200206
  Receipt Date: 20200206
  Transmission Date: 20200409
  Serious: No
  Sender: FDA-Public Use
  Company Number: US-ABBVIE-19K-163-2854133-00

PATIENT
  Age: 60 Year
  Sex: Female

DRUGS (2)
  1. HUMIRA [Suspect]
     Active Substance: ADALIMUMAB
     Indication: PSORIASIS
     Route: 058
     Dates: start: 2009
  2. HUMIRA [Suspect]
     Active Substance: ADALIMUMAB
     Indication: PSORIATIC ARTHROPATHY
     Route: 058
     Dates: start: 2009

REACTIONS (7)
  - Mobility decreased [Unknown]
  - Device issue [Recovered/Resolved]
  - Abdominal pain upper [Unknown]
  - Injection site pain [Unknown]
  - Delayed delivery [Recovered/Resolved]
  - Injection site haemorrhage [Unknown]
  - Skin plaque [Unknown]

NARRATIVE: CASE EVENT DATE: 2018
